FAERS Safety Report 23035471 (Version 3)
Quarter: 2023Q4

REPORT INFORMATION
  Report Type: Report from Study
  Country: US (occurrence: US)
  Receive Date: 20231006
  Receipt Date: 20231128
  Transmission Date: 20240110
  Serious: No
  Sender: FDA-Public Use
  Company Number: US-SA-2023SA297785

PATIENT
  Age: 53 Year
  Sex: Female

DRUGS (2)
  1. DUPIXENT [Suspect]
     Active Substance: DUPILUMAB
     Indication: Eczema nummular
     Dosage: 600 MG, 1X
     Route: 058
     Dates: start: 20230922, end: 20230922
  2. DUPIXENT [Suspect]
     Active Substance: DUPILUMAB
     Dosage: 300 MG, QOW
     Route: 058
     Dates: start: 202310

REACTIONS (10)
  - Injection site pain [Recovering/Resolving]
  - Fatigue [Unknown]
  - Somnolence [Recovering/Resolving]
  - Skin discolouration [Recovering/Resolving]
  - Dry skin [Recovering/Resolving]
  - Skin exfoliation [Recovering/Resolving]
  - Erythema [Recovering/Resolving]
  - Product preparation error [Unknown]
  - Dermatitis atopic [Recovering/Resolving]
  - Therapeutic response decreased [Unknown]

NARRATIVE: CASE EVENT DATE: 20230101
